FAERS Safety Report 8003405-5 (Version None)
Quarter: 2011Q4

REPORT INFORMATION
  Report Type: 
  Country: None (occurrence: None)
  Receive Date: 20111222
  Receipt Date: 20111212
  Transmission Date: 20120403
  Serious: Yes (Hospitalization)
  Sender: FDA-Public Use
  Company Number: US-ABBOTT-11P-163-0882672-00

PATIENT
  Sex: Female
  Weight: 60.382 kg

DRUGS (12)
  1. ZINC SULFATE [Concomitant]
     Indication: VITAMIN SUPPLEMENTATION
     Dates: start: 20111101
  2. HUMIRA [Suspect]
     Indication: IRRITABLE BOWEL SYNDROME
     Route: 058
     Dates: start: 20110901, end: 20111101
  3. CT PREP [Suspect]
     Indication: COMPUTERISED TOMOGRAM
     Dates: start: 20111214, end: 20111214
  4. MERCAPTOPURINE [Concomitant]
     Indication: CROHN'S DISEASE
     Dates: start: 20111001
  5. MERCAPTOPURINE [Concomitant]
  6. PENTASA [Concomitant]
     Indication: CROHN'S DISEASE
     Route: 048
  7. FERROUS SULFATE TAB [Concomitant]
     Indication: CROHN'S DISEASE
  8. MERCAPTOPURINE [Concomitant]
  9. MERCAPTOPURINE [Concomitant]
  10. HUMIRA [Suspect]
     Indication: CROHN'S DISEASE
     Route: 058
     Dates: start: 20080101, end: 20110901
  11. HUMIRA [Suspect]
     Route: 058
     Dates: start: 20111101
  12. VITAMIN D [Concomitant]
     Indication: VITAMIN SUPPLEMENTATION
     Dates: start: 20111101

REACTIONS (15)
  - PYREXIA [None]
  - ABDOMINAL PAIN [None]
  - VOMITING [None]
  - EPISTAXIS [None]
  - HOT FLUSH [None]
  - RASH [None]
  - WEIGHT DECREASED [None]
  - CROHN'S DISEASE [None]
  - FATIGUE [None]
  - DRUG LEVEL BELOW THERAPEUTIC [None]
  - MYALGIA [None]
  - HAEMATOCHEZIA [None]
  - HEADACHE [None]
  - OPEN WOUND [None]
  - DRUG INEFFECTIVE [None]
